FAERS Safety Report 7086552-4 (Version None)
Quarter: 2010Q4

REPORT INFORMATION
  Report Type: 
  Country: None (occurrence: None)
  Receive Date: 20101105
  Receipt Date: 20100930
  Transmission Date: 20110411
  Serious: Yes (Death, Other)
  Sender: FDA-Public Use
  Company Number: US-BAYER-200923798NA

PATIENT
  Age: 51 Year
  Sex: Male
  Weight: 70 kg

DRUGS (34)
  1. MAGNEVIST [Suspect]
     Indication: NUCLEAR MAGNETIC RESONANCE IMAGING
     Route: 042
     Dates: start: 20060726, end: 20060726
  2. MAGNEVIST [Suspect]
     Dosage: TOTAL DAILY DOSE: 20 ML
     Route: 042
     Dates: start: 20060809, end: 20060809
  3. OMNISCAN [Suspect]
     Indication: NUCLEAR MAGNETIC RESONANCE IMAGING
  4. OPTIMARK [Suspect]
     Indication: NUCLEAR MAGNETIC RESONANCE IMAGING
  5. MULTIHANCE [Suspect]
     Indication: NUCLEAR MAGNETIC RESONANCE IMAGING
  6. PROHANCE [Suspect]
     Indication: NUCLEAR MAGNETIC RESONANCE IMAGING
  7. UNSPECIFIED GADOLINIUM BASED CONTRAST AGENT [Suspect]
     Dates: start: 20001001, end: 20001001
  8. PREDNISONE [Concomitant]
  9. MINOXIDIL [Concomitant]
  10. CLONIDINE [Concomitant]
  11. PHOSLO [Concomitant]
  12. FORSENOL [Concomitant]
  13. RENAPHRO [Concomitant]
  14. PERCOCET [Concomitant]
  15. EPOGEN [Concomitant]
  16. HECTOROL [Concomitant]
  17. PLAQUENIL [Concomitant]
  18. FERRLECIT [Concomitant]
  19. IMURAN [Concomitant]
  20. NORVASC [Concomitant]
  21. RENAGEL [Concomitant]
  22. TUMS [Concomitant]
  23. MICARDIS [Concomitant]
  24. PROCARDIA [Concomitant]
  25. ZEMPLAR [Concomitant]
  26. ASPIRIN [Concomitant]
  27. VANCOMYCIN [Concomitant]
  28. COREG [Concomitant]
  29. AMIODARONE [Concomitant]
  30. DIGOXIN [Concomitant]
  31. FLORINEF [Concomitant]
  32. CORTISONE ACETATE [Concomitant]
  33. LOPRESSOR [Concomitant]
  34. DARBOPOETIN [Concomitant]

REACTIONS (18)
  - ARTHRALGIA [None]
  - FIBROSIS [None]
  - GAIT DISTURBANCE [None]
  - GENERAL PHYSICAL HEALTH DETERIORATION [None]
  - JOINT RANGE OF MOTION DECREASED [None]
  - JOINT STIFFNESS [None]
  - MOBILITY DECREASED [None]
  - MUSCLE CONTRACTIONS INVOLUNTARY [None]
  - MUSCULAR WEAKNESS [None]
  - MUSCULOSKELETAL STIFFNESS [None]
  - NEPHROGENIC SYSTEMIC FIBROSIS [None]
  - OEDEMA PERIPHERAL [None]
  - PAIN [None]
  - SKIN DISCOLOURATION [None]
  - SKIN FIBROSIS [None]
  - SKIN HYPERPIGMENTATION [None]
  - SKIN HYPERTROPHY [None]
  - SKIN INDURATION [None]
